FAERS Safety Report 19658665 (Version 1)
Quarter: 2021Q3

REPORT INFORMATION
  Report Type: Spontaneous
  Country: US (occurrence: US)
  Receive Date: 20210805
  Receipt Date: 20210805
  Transmission Date: 20211014
  Serious: No
  Sender: FDA-Public Use
  Company Number: US-SA-2021SA256133

PATIENT
  Age: 22 Year
  Sex: Female

DRUGS (1)
  1. KEVZARA [Suspect]
     Active Substance: SARILUMAB
     Indication: JUVENILE IDIOPATHIC ARTHRITIS
     Dosage: 200 MG, QOW
     Route: 058
     Dates: start: 20200922

REACTIONS (5)
  - Injection site pruritus [Recovered/Resolved]
  - Product use in unapproved indication [Unknown]
  - Injection site reaction [Recovered/Resolved]
  - Injection site warmth [Recovered/Resolved]
  - Injection site erythema [Recovered/Resolved]

NARRATIVE: CASE EVENT DATE: 20200922
